FAERS Safety Report 23356996 (Version 1)
Quarter: 2024Q1

REPORT INFORMATION
  Report Type: Spontaneous
  Country: FR (occurrence: FR)
  Receive Date: 20240102
  Receipt Date: 20240102
  Transmission Date: 20240410
  Serious: Yes (Hospitalization)
  Sender: FDA-Public Use
  Company Number: None

PATIENT
  Age: 9 Year
  Sex: Male

DRUGS (2)
  1. TAFINLAR [Suspect]
     Active Substance: DABRAFENIB MESYLATE
     Indication: Optic glioma
     Dosage: UNK
     Route: 065
     Dates: start: 20200725
  2. MEKINIST [Suspect]
     Active Substance: TRAMETINIB DIMETHYL SULFOXIDE
     Indication: Optic glioma
     Dosage: UNK
     Route: 065
     Dates: start: 20200725

REACTIONS (1)
  - Pyelonephritis acute [Recovered/Resolved]

NARRATIVE: CASE EVENT DATE: 20200828
